FAERS Safety Report 14263284 (Version 2)
Quarter: 2017Q4

REPORT INFORMATION
  Report Type: Report from Study
  Country: None (occurrence: US)
  Receive Date: 20171208
  Receipt Date: 20171221
  Transmission Date: 20180321
  Serious: No
  Sender: FDA-Public Use
  Company Number: US-ABBVIE-17K-163-2184794-00

PATIENT
  Age: 65 Year
  Sex: Female
  Weight: 75.36 kg

DRUGS (2)
  1. HUMIRA [Suspect]
     Active Substance: ADALIMUMAB
     Indication: PSORIATIC ARTHROPATHY
     Route: 058
     Dates: start: 20170929, end: 20171107
  2. HUMIRA [Suspect]
     Active Substance: ADALIMUMAB
     Route: 058
     Dates: start: 20171207

REACTIONS (14)
  - Loss of personal independence in daily activities [Not Recovered/Not Resolved]
  - Pain in extremity [Unknown]
  - Head discomfort [Recovered/Resolved]
  - Pain [Unknown]
  - Musculoskeletal stiffness [Unknown]
  - Back pain [Unknown]
  - Gait disturbance [Not Recovered/Not Resolved]
  - Ear congestion [Recovered/Resolved]
  - Hyperhidrosis [Unknown]
  - Arthralgia [Unknown]
  - Joint stiffness [Unknown]
  - Nasopharyngitis [Recovering/Resolving]
  - Laryngitis [Recovered/Resolved]
  - Drug effect decreased [Unknown]

NARRATIVE: CASE EVENT DATE: 2017
